FAERS Safety Report 9351235 (Version 1)
Quarter: 2013Q2

REPORT INFORMATION
  Report Type: Spontaneous
  Country: US (occurrence: US)
  Receive Date: 20130617
  Receipt Date: 20130617
  Transmission Date: 20140414
  Serious: Yes (Other)
  Sender: FDA-Public Use
  Company Number: US-BAYER-2013-072756

PATIENT
  Age: 48 Year
  Sex: Female
  Weight: 126.8 kg

DRUGS (13)
  1. OCELLA [Suspect]
  2. YASMIN [Suspect]
  3. ERYTHROMYCIN [Concomitant]
  4. PREDNISONE [Concomitant]
  5. TESSALON PERLES [Concomitant]
     Dosage: ONE UNK, TID
     Dates: start: 20121023
  6. COREG [Concomitant]
     Dosage: 40 MG, DAILY
     Dates: start: 20121106
  7. ADVAIR [Concomitant]
     Dosage: 115-21 MCG/ACT 2 PUFFS TWICE DAILY
     Dates: start: 20121106
  8. ALBUTEROL [Concomitant]
     Dosage: 90 MCG, PRN
     Dates: start: 20121106
  9. ELESTAT [Concomitant]
     Dosage: AS DIRECTED UNK
     Dates: start: 20121106
  10. NASACORT [Concomitant]
     Dosage: 55 MCG/ACT
     Dates: start: 20121106
  11. RELPAX [Concomitant]
     Dosage: 40 MG, PRN
     Dates: start: 20121106
  12. SYEDA [Concomitant]
  13. XARELTO [Concomitant]

REACTIONS (2)
  - Deep vein thrombosis [None]
  - Thrombophlebitis superficial [None]
